FAERS Safety Report 7125991-X (Version None)
Quarter: 2010Q4

REPORT INFORMATION
  Report Type: 
  Country: None (occurrence: None)
  Receive Date: 20101129
  Receipt Date: 20101119
  Transmission Date: 20110411
  Serious: Yes (Hospitalization)
  Sender: FDA-Public Use
  Company Number: FR-SANOFI-AVENTIS-2010SA070541

PATIENT
  Age: 23 Year
  Sex: Female

DRUGS (12)
  1. DEPAKENE [Suspect]
     Dates: start: 20101007, end: 20101015
  2. RIFADIN [Suspect]
     Indication: TUBERCULOSIS
     Dates: start: 20100913
  3. RIMIFON [Concomitant]
     Indication: TUBERCULOSIS
     Dates: start: 20100913
  4. MYAMBUTOL [Concomitant]
     Indication: TUBERCULOSIS
     Dates: start: 20100913
  5. PIRILENE [Concomitant]
     Indication: TUBERCULOSIS
     Dates: start: 20100913
  6. CORTANCYL [Concomitant]
     Indication: TUBERCULOSIS
     Dates: start: 20100913
  7. RIVOTRIL [Concomitant]
     Dates: start: 20101003, end: 20101005
  8. KEPPRA [Concomitant]
     Dates: start: 20101007, end: 20101013
  9. PRODILANTIN [Concomitant]
     Dates: start: 20101013
  10. HYDREA [Concomitant]
  11. SPECIAFOLDINE [Concomitant]
  12. ARANESP [Concomitant]

REACTIONS (3)
  - CONVULSION [None]
  - DRUG INEFFECTIVE [None]
  - DRUG LEVEL BELOW THERAPEUTIC [None]
